FAERS Safety Report 14826732 (Version 1)
Quarter: 2018Q2

REPORT INFORMATION
  Report Type: Spontaneous
  Country: GB (occurrence: GB)
  Receive Date: 20180430
  Receipt Date: 20180430
  Transmission Date: 20180711
  Serious: Yes (Congenital Anomaly)
  Sender: FDA-Public Use
  Company Number: GB-PFIZER INC-08H-167-0314194-00

PATIENT

DRUGS (8)
  1. CYCLIZINE [Concomitant]
     Active Substance: CYCLIZINE
     Dosage: 50 MG, THREE TIMES DAILY
     Route: 064
     Dates: start: 20080109, end: 20080114
  2. ONDANSETRON [Suspect]
     Active Substance: ONDANSETRON
     Indication: VOMITING
     Dosage: 4 MG, TWICE DAILY
     Route: 064
     Dates: start: 20080112, end: 20080114
  3. ONDANSETRON [Suspect]
     Active Substance: ONDANSETRON
     Dosage: 4 MG, THREE TIMES DAILY
     Route: 064
     Dates: start: 20080114, end: 20080114
  4. METOCLOPRAMIDE. [Concomitant]
     Active Substance: METOCLOPRAMIDE
     Dosage: 10 MG, THREE TIMES DAILY
     Route: 064
     Dates: start: 20080109, end: 20080115
  5. METOCLOPRAMIDE. [Concomitant]
     Active Substance: METOCLOPRAMIDE
     Dosage: 10 MG, UNK
     Route: 064
     Dates: start: 20080116
  6. PROMETHAZINE [Concomitant]
     Active Substance: PROMETHAZINE\PROMETHAZINE HYDROCHLORIDE
     Dosage: 25 MG, THREE TIMES DAILY
     Route: 064
     Dates: start: 20080109, end: 20080110
  7. FOLIC ACID. [Concomitant]
     Active Substance: FOLIC ACID
     Dosage: 5 MG, DAILY
     Route: 064
  8. THIAMINE. [Concomitant]
     Active Substance: THIAMINE
     Dosage: 25 MG, DAILY
     Route: 064
     Dates: start: 20080114

REACTIONS (9)
  - Spinal deformity [Unknown]
  - Maternal exposure during pregnancy [Unknown]
  - Foetal malformation [Unknown]
  - Congenital diaphragmatic anomaly [Unknown]
  - Foetal growth restriction [Unknown]
  - Gastroschisis [Unknown]
  - Hydronephrosis [Unknown]
  - Heart disease congenital [Unknown]
  - Pulmonary hypoplasia [Unknown]

NARRATIVE: CASE EVENT DATE: 200801
